FAERS Safety Report 5350904-0 (Version None)
Quarter: 2007Q2

REPORT INFORMATION
  Report Type: 
  Country: None (occurrence: None)
  Receive Date: 20070608
  Receipt Date: 20070604
  Transmission Date: 20071010
  Serious: Yes (Life-Threatening)
  Sender: FDA-Public Use
  Company Number: FR-BRISTOL-MYERS SQUIBB COMPANY-13805437

PATIENT
  Age: 71 Year
  Sex: Female

DRUGS (10)
  1. DAFALGAN [Suspect]
     Indication: PAIN IN EXTREMITY
  2. PRAVADUAL TABS [Suspect]
     Indication: CARDIAC DISORDER
     Route: 048
     Dates: end: 20070416
  3. PRAVADUAL TABS [Suspect]
     Indication: HYPERTENSION
     Route: 048
     Dates: end: 20070416
  4. ACETYLSALICYLIC ACID SRT [Suspect]
  5. PREVISCAN [Suspect]
     Indication: CARDIAC DISORDER
     Route: 048
     Dates: end: 20070416
  6. PREVISCAN [Suspect]
     Indication: HYPERTENSION
     Route: 048
     Dates: end: 20070416
  7. TENORMIN [Suspect]
     Route: 048
     Dates: end: 20070416
  8. AUGMENTIN '125' [Suspect]
     Indication: VARICOSE ULCERATION
     Route: 048
     Dates: start: 20070412, end: 20070416
  9. NUREFLEX [Suspect]
     Indication: PAIN IN EXTREMITY
     Route: 048
  10. LAMALINE [Concomitant]

REACTIONS (1)
  - HAEMATOMA [None]
